FAERS Safety Report 5447692-6 (Version None)
Quarter: 2007Q3

REPORT INFORMATION
  Report Type: 
  Country: None (occurrence: None)
  Receive Date: 20070910
  Receipt Date: 20070411
  Transmission Date: 20080115
  Serious: Yes (Other)
  Sender: FDA-Public Use
  Company Number: JP-MERCK-0704USA03893

PATIENT
  Weight: 2 kg

DRUGS (12)
  1. SINGULAIR [Suspect]
     Route: 048
  2. PULMICORT [Concomitant]
  3. SEREVENT [Concomitant]
  4. BETAMETHASONE [Concomitant]
     Route: 048
  5. BETAMETHASONE [Concomitant]
     Route: 048
     Dates: start: 20040209
  6. BETAMETHASONE [Concomitant]
     Route: 048
     Dates: start: 20040501
  7. THEOPHYLLINE [Concomitant]
     Route: 048
  8. ALBUTEROL [Concomitant]
     Dates: start: 20040209
  9. [THERAPY UNSPECIFIED] [Concomitant]
     Route: 041
     Dates: start: 20040209
  10. AMINOPHYLLINE [Concomitant]
     Route: 051
     Dates: start: 20040209
  11. XYLOCAINE [Concomitant]
     Dates: start: 20040303, end: 20040309
  12. XYLOCAINE [Concomitant]
     Dates: start: 20040310

REACTIONS (4)
  - CAESAREAN SECTION [None]
  - DRUG EXPOSURE DURING PREGNANCY [None]
  - PREMATURE BABY [None]
  - SMALL FOR DATES BABY [None]
